FAERS Safety Report 4577920-0 (Version None)
Quarter: 2005Q1

REPORT INFORMATION
  Report Type: 
  Country: None (occurrence: None)
  Receive Date: 20050209
  Receipt Date: 20050126
  Transmission Date: 20050727
  Serious: Yes (Life-Threatening, Hospitalization)
  Sender: FDA-Public Use
  Company Number: 2004JP001936

PATIENT
  Age: 28 Year
  Sex: Male
  Weight: 60.4 kg

DRUGS (11)
  1. PROGRAF [Suspect]
     Indication: RENAL TRANSPLANT
     Dosage: SEE IMAGE
     Route: 042
     Dates: start: 20040517, end: 20040518
  2. PROGRAF [Suspect]
     Indication: RENAL TRANSPLANT
     Dosage: SEE IMAGE
     Route: 042
     Dates: start: 20040519, end: 20040519
  3. PROGRAF [Suspect]
     Indication: RENAL TRANSPLANT
     Dosage: SEE IMAGE
     Route: 042
     Dates: start: 20040520, end: 20040521
  4. PROGRAF [Suspect]
     Indication: RENAL TRANSPLANT
     Dosage: SEE IMAGE
     Route: 042
     Dates: start: 20040522, end: 20040522
  5. PROGRAF [Suspect]
     Indication: RENAL TRANSPLANT
     Dosage: SEE IMAGE
     Route: 042
     Dates: start: 20040522, end: 20040522
  6. PROGRAF [Suspect]
     Indication: RENAL TRANSPLANT
     Dosage: SEE IMAGE
     Route: 042
     Dates: start: 20040523, end: 20040524
  7. SULPERAZONE (CEFOPERAZONE SODIUM, SULBACTAM SODIUM) INJECTION [Suspect]
     Dosage: 1.00 G, UID/QD, INTRAVENOUS
     Route: 042
     Dates: start: 20040519, end: 20040524
  8. BASILIXIMAB (BASILIXIMAB) INJECTION [Suspect]
     Dosage: 20.00 MG, UID/QD, INTRAVENOUS
     Route: 042
     Dates: start: 20040519, end: 20040523
  9. MIZORIBINE (MIZORIBINE) TABLET [Suspect]
     Dosage: SEE IMAGE
     Route: 048
     Dates: start: 20040517, end: 20040518
  10. MIZORIBINE (MIZORIBINE) TABLET [Suspect]
     Dosage: SEE IMAGE
     Route: 048
     Dates: start: 20040521, end: 20040524
  11. PREDNISOLONE [Concomitant]

REACTIONS (3)
  - AUTOIMMUNE DISORDER [None]
  - INTERSTITIAL LUNG DISEASE [None]
  - RENAL TRANSPLANT [None]
